FAERS Safety Report 4667061-6 (Version None)
Quarter: 2005Q2

REPORT INFORMATION
  Report Type: 
  Country: None (occurrence: None)
  Receive Date: 20050520
  Receipt Date: 20050202
  Transmission Date: 20051028
  Serious: Yes (Other)
  Sender: FDA-Public Use
  Company Number: PHEH2005US01580

PATIENT
  Age: 78 Year
  Sex: Female

DRUGS (3)
  1. CHEMOTHERAPEUTICS,OTHER [Concomitant]
  2. AREDIA [Suspect]
     Indication: METASTASES TO BONE
     Dosage: 90 MG, QMO
     Dates: start: 20001201, end: 20041001
  3. AZITHROMYCIN [Concomitant]
     Indication: SINUSITIS

REACTIONS (7)
  - BONE DISORDER [None]
  - GINGIVAL ULCERATION [None]
  - ORAL SURGERY [None]
  - OSTEONECROSIS [None]
  - PAIN IN JAW [None]
  - PRIMARY SEQUESTRUM [None]
  - TOOTH LOSS [None]
